FAERS Safety Report 4659835-2 (Version None)
Quarter: 2005Q2

REPORT INFORMATION
  Report Type: 
  Country: None (occurrence: None)
  Receive Date: 20050510
  Receipt Date: 20050426
  Transmission Date: 20051028
  Serious: Yes (Hospitalization)
  Sender: FDA-Public Use
  Company Number: 2002071345

PATIENT
  Age: 48 Year
  Sex: Female
  Weight: 62 kg

DRUGS (4)
  1. ZIPRASIDONE (CAPS) (ZIPRASIDONE) [Suspect]
     Indication: SCHIZOPHRENIA
     Dosage: 80 MG (2 IN 1 D), ORAL
     Route: 048
     Dates: start: 20021022, end: 20021210
  2. INSULIN [Concomitant]
  3. BIPERIDEN (BIPERIDEN) [Concomitant]
  4. SERTRALINE HCL [Concomitant]

REACTIONS (1)
  - INSOMNIA [None]
